FAERS Safety Report 25111973 (Version 1)
Quarter: 2025Q1

REPORT INFORMATION
  Report Type: Spontaneous
  Country: FR (occurrence: FR)
  Receive Date: 20250324
  Receipt Date: 20250324
  Transmission Date: 20250408
  Serious: Yes (Hospitalization, Other)
  Sender: BIOCODEX
  Company Number: FR-BIOCODEX2-2007000521

PATIENT
  Sex: Male
  Weight: 11.63 kg

DRUGS (6)
  1. DIACOMIT [Suspect]
     Active Substance: STIRIPENTOL
     Indication: Severe myoclonic epilepsy of infancy
     Dosage: NUMBER OF SEPARATE DOSAGE: 2
     Route: 048
     Dates: start: 200609, end: 20070223
  2. DIACOMIT [Suspect]
     Active Substance: STIRIPENTOL
     Indication: Severe myoclonic epilepsy of infancy
     Dosage: NUMBER OF SEPARATE DOSAGE: 2
     Route: 048
     Dates: start: 20070223
  3. DIACOMIT [Suspect]
     Active Substance: STIRIPENTOL
     Indication: Severe myoclonic epilepsy of infancy
     Dosage: NUMBER OF SEPARATE DOSAGE: 2
     Route: 048
  4. TOPIRAMATE [Concomitant]
     Active Substance: TOPIRAMATE
     Indication: Severe myoclonic epilepsy of infancy
     Dosage: NUMBER OF SEPARATE DOSAGE: 2
     Route: 065
     Dates: start: 200609
  5. VALPROATE SODIUM [Concomitant]
     Active Substance: VALPROATE SODIUM
     Indication: Severe myoclonic epilepsy of infancy
     Dosage: NUMBER OF SEPARATE DOSAGE: 2
     Route: 065
     Dates: start: 200609
  6. CLOBAZAM [Concomitant]
     Active Substance: CLOBAZAM
     Indication: Severe myoclonic epilepsy of infancy
     Route: 065
     Dates: start: 200609

REACTIONS (1)
  - Seizure [Unknown]

NARRATIVE: CASE EVENT DATE: 20070219
